FAERS Safety Report 17074604 (Version 2)
Quarter: 2019Q4

REPORT INFORMATION
  Report Type: Report from Study
  Country: JP (occurrence: JP)
  Receive Date: 20191126
  Receipt Date: 20191213
  Transmission Date: 20200122
  Serious: Yes (Life-Threatening)
  Sender: FDA-Public Use
  Company Number: JP-ASTRAZENECA-2019SF68704

PATIENT
  Age: 78 Year
  Sex: Male
  Weight: 65 kg

DRUGS (7)
  1. ASPIRIN. [Concomitant]
     Active Substance: ASPIRIN
     Dosage: NUMBER OF SEPARATE DOSAGES UNKNOWN
     Route: 065
     Dates: start: 20181017
  2. TAKECAB [Concomitant]
     Active Substance: VONOPRAZAN FUMURATE
     Indication: PROPHYLAXIS
     Dosage: NUMBER OF SEPARATE DOSAGES UNKNOWN
     Route: 048
  3. BILANOA [Concomitant]
     Active Substance: BILASTINE
     Dosage: NUMBER OF SEPARATE DOSAGES UNKNOWN
     Route: 048
     Dates: end: 20190912
  4. BRILINTA [Suspect]
     Active Substance: TICAGRELOR
     Indication: ACUTE MYOCARDIAL INFARCTION
     Route: 048
     Dates: start: 20181023
  5. PRASUGREL HYDROCHLORIDE [Concomitant]
     Active Substance: PRASUGREL HYDROCHLORIDE
     Dosage: NUMBER OF SEPARATE DOSAGES UNKNOWN
     Route: 065
     Dates: start: 20181017, end: 20181023
  6. AZILVA [Concomitant]
     Active Substance: AZILSARTAN KAMEDOXOMIL
     Indication: ACUTE MYOCARDIAL INFARCTION
     Dosage: NUMBER OF SEPARATE DOSAGES UNKNOWN
     Route: 048
  7. MAGMITT [Concomitant]
     Active Substance: MAGNESIUM OXIDE
     Dosage: NUMBER OF SEPARATE DOSAGES UNKNOWN
     Route: 048

REACTIONS (1)
  - Lung neoplasm malignant [Not Recovered/Not Resolved]

NARRATIVE: CASE EVENT DATE: 20191029
